FAERS Safety Report 4556395-1 (Version None)
Quarter: 2005Q1

REPORT INFORMATION
  Report Type: 
  Country: None (occurrence: None)
  Receive Date: 20050103
  Receipt Date: 20041118
  Transmission Date: 20050727
  Serious: Yes (Hospitalization, Other)
  Sender: FDA-Public Use
  Company Number: 200410353GDS

PATIENT
  Age: 85 Year
  Sex: Female
  Weight: 84 kg

DRUGS (17)
  1. AVELOX [Suspect]
     Indication: PNEUMONIA
     Dosage: 400 MG, TOTAL DAILY, PARENTERAL
     Route: 051
     Dates: start: 20030309, end: 20030311
  2. DIGOXIN [Concomitant]
  3. FUROSEMIDE [Concomitant]
  4. ATORVASTATIN [Concomitant]
  5. COREG [Concomitant]
  6. GLYBURIDE [Concomitant]
  7. NITROGLYCERIN [Concomitant]
  8. ZAROXOLYN [Concomitant]
  9. RANITIDINE [Concomitant]
  10. DEXAMETHASONE [Concomitant]
  11. KCL TAB [Concomitant]
  12. ASPIRIN [Concomitant]
  13. HEPARIN [Concomitant]
  14. SPIRONOLACTONE [Concomitant]
  15. LASIX [Concomitant]
  16. DOBUTAMINE HCL [Concomitant]
  17. NOREPINEPHRINE [Concomitant]

REACTIONS (6)
  - ALANINE AMINOTRANSFERASE INCREASED [None]
  - AMMONIA INCREASED [None]
  - ASPARTATE AMINOTRANSFERASE INCREASED [None]
  - BLOOD BILIRUBIN INCREASED [None]
  - HEPATITIS [None]
  - INTERNATIONAL NORMALISED RATIO INCREASED [None]
